FAERS Safety Report 21609467 (Version 2)
Quarter: 2022Q4

REPORT INFORMATION
  Report Type: Report from Study
  Country: CA (occurrence: CA)
  Receive Date: 20221117
  Receipt Date: 20221119
  Transmission Date: 20230113
  Serious: Yes (Death)
  Sender: FDA-Public Use
  Company Number: CA-CHIESI-2022CHF05932

PATIENT
  Age: 81 Year
  Sex: Female
  Weight: 70.6 kg

DRUGS (3)
  1. DEFERIPRONE [Suspect]
     Active Substance: DEFERIPRONE
     Indication: Myelofibrosis
     Dosage: 3000 MILLIGRAM, BID
     Dates: start: 20210907
  2. DEFERIPRONE [Suspect]
     Active Substance: DEFERIPRONE
     Indication: Polycythaemia vera
  3. DEFERIPRONE [Suspect]
     Active Substance: DEFERIPRONE
     Indication: Off label use

REACTIONS (3)
  - Death [Fatal]
  - Off label use [Unknown]
  - Off label use [Unknown]

NARRATIVE: CASE EVENT DATE: 20210907
